FAERS Safety Report 12321745 (Version 1)
Quarter: 2016Q2

REPORT INFORMATION
  Report Type: Report from Study
  Country: US (occurrence: US)
  Receive Date: 20160502
  Receipt Date: 20160502
  Transmission Date: 20160815
  Serious: Yes (Other)
  Sender: FDA-Public Use
  Company Number: US-AMGEN-USASL2016054677

PATIENT
  Age: 57 Year
  Sex: Female

DRUGS (1)
  1. ENBREL [Suspect]
     Active Substance: ETANERCEPT
     Indication: PRODUCT USED FOR UNKNOWN INDICATION
     Dosage: UNK UNK, UNK
     Route: 065

REACTIONS (9)
  - Joint swelling [Unknown]
  - Pain in extremity [Unknown]
  - Tympanic membrane perforation [Recovered/Resolved]
  - Drug effect decreased [Unknown]
  - Rheumatoid nodule [Unknown]
  - Peripheral swelling [Unknown]
  - Arthralgia [Unknown]
  - Bone disorder [Recovered/Resolved]
  - Ear infection [Recovered/Resolved]
